FAERS Safety Report 5319180-9 (Version None)
Quarter: 2007Q2

REPORT INFORMATION
  Report Type: 
  Country: None (occurrence: None)
  Receive Date: 20070508
  Receipt Date: 20070426
  Transmission Date: 20071010
  Serious: Yes (Hospitalization, Other)
  Sender: FDA-Public Use
  Company Number: HQWYE858426APR07

PATIENT
  Age: 80 Year
  Sex: Female

DRUGS (7)
  1. INIPOMP [Suspect]
     Route: 048
     Dates: start: 20070130
  2. FORLAX [Suspect]
     Dosage: DF
     Route: 048
     Dates: start: 20070205, end: 20070214
  3. STABLON [Suspect]
     Dosage: 12.5 MG, FREQUENCY NOT SPECIFIED
     Route: 048
     Dates: start: 20070209, end: 20070214
  4. ATHYMIL [Suspect]
     Route: 048
     Dates: start: 20070131, end: 20070206
  5. ATHYMIL [Suspect]
     Route: 048
     Dates: start: 20070208, end: 20070210
  6. ATHYMIL [Suspect]
     Route: 048
     Dates: start: 20070211, end: 20070215
  7. LEXOMIL [Suspect]
     Dosage: DF
     Route: 048

REACTIONS (3)
  - EOSINOPHILIA [None]
  - NON-HODGKIN'S LYMPHOMA [None]
  - THROMBOCYTOPENIA [None]
